FAERS Safety Report 8964824 (Version 1)
Quarter: 2012Q4

REPORT INFORMATION
  Report Type: 
  Country: US (occurrence: US)
  Receive Date: 20121214
  Receipt Date: 20121214
  Transmission Date: 20130627
  Serious: Yes (Hospitalization)
  Sender: FDA-Public Use
  Company Number: US-INCYTE CORPORATION-2012IN001812

PATIENT
  Sex: Male

DRUGS (6)
  1. JAKAFI [Suspect]
     Indication: MYELOFIBROSIS
     Dosage: 20 mg, bid
     Route: 048
     Dates: start: 201203
  2. LIPITOR [Concomitant]
  3. ATENOLOL [Concomitant]
  4. ASPIRIN [Concomitant]
     Dosage: 81 mg, UNK
  5. TRAZOLAN [Concomitant]
  6. DILAUDID [Concomitant]

REACTIONS (10)
  - Mitral valve incompetence [Unknown]
  - Pulmonary embolism [Unknown]
  - Cardiac failure congestive [Unknown]
  - Carotid bruit [Unknown]
  - Dyspnoea [Unknown]
  - Abdominal discomfort [Unknown]
  - Asthenia [Unknown]
  - Alopecia [Unknown]
  - Malaise [Unknown]
  - Blood count abnormal [Unknown]
